FAERS Safety Report 6723968-7 (Version None)
Quarter: 2010Q2

REPORT INFORMATION
  Report Type: 
  Country: None (occurrence: None)
  Receive Date: 20100513
  Receipt Date: 20100504
  Transmission Date: 20101027
  Serious: Yes (Other)
  Sender: FDA-Public Use
  Company Number: PHHY2010US28944

PATIENT
  Sex: Female

DRUGS (3)
  1. RECLAST [Suspect]
     Indication: OSTEOPOROSIS
     Route: 042
  2. FOSAMAX [Suspect]
     Indication: OSTEOPOROSIS
  3. BONIVA [Suspect]
     Indication: OSTEOPOROSIS

REACTIONS (1)
  - FRACTURE [None]
